FAERS Safety Report 13223406 (Version 1)
Quarter: 2017Q1

REPORT INFORMATION
  Report Type: Other
  Country: US (occurrence: US)
  Receive Date: 20170212
  Receipt Date: 20170212
  Transmission Date: 20170428
  Serious: No
  Sender: FDA-Public Use
  Company Number: US-ACORDA-ACO_125034_2016

PATIENT
  Age: 43 Year
  Sex: Female
  Weight: 56.69 kg

DRUGS (3)
  1. NITROFURANTOIN. [Concomitant]
     Active Substance: NITROFURANTOIN
     Indication: PROPHYLAXIS URINARY TRACT INFECTION
     Dosage: 50 MG, UNK
     Route: 065
     Dates: start: 2015
  2. AMPYRA [Suspect]
     Active Substance: DALFAMPRIDINE
     Indication: GAIT DISTURBANCE
     Dosage: 10 MG, BID
     Route: 048
     Dates: start: 201512, end: 201605
  3. TECFIDERA [Concomitant]
     Active Substance: DIMETHYL FUMARATE
     Indication: PRODUCT USED FOR UNKNOWN INDICATION
     Dosage: 240 MG, BID
     Route: 065

REACTIONS (7)
  - Mental impairment [Not Recovered/Not Resolved]
  - Impaired driving ability [Not Recovered/Not Resolved]
  - Urinary tract infection [Recovered/Resolved]
  - Incontinence [Recovered/Resolved]
  - Fall [Not Recovered/Not Resolved]
  - Urinary tract infection [Recovered/Resolved]
  - Pollakiuria [Recovered/Resolved]

NARRATIVE: CASE EVENT DATE: 201603
